FAERS Safety Report 13267114 (Version 1)
Quarter: 2017Q1

REPORT INFORMATION
  Report Type: Spontaneous
  Country: NL (occurrence: NL)
  Receive Date: 20170224
  Receipt Date: 20170224
  Transmission Date: 20170428
  Serious: Yes (Other)
  Sender: FDA-Public Use
  Company Number: NL-ACCORD-048409

PATIENT
  Age: 36 Year
  Sex: Female

DRUGS (3)
  1. VENLAFAXINE/VENLAFAXINE HYDROCHLORIDE [Concomitant]
     Indication: BIPOLAR DISORDER
     Dosage: VENLAFAXINE 225MG RETARD,??(IN THIS DAILY DOSAGE)
     Route: 048
     Dates: start: 20151221
  2. QUETIAPINE ACCORD [Suspect]
     Active Substance: QUETIAPINE
     Indication: BIPOLAR DISORDER
     Dosage: QUETIAPINE 50 MG TABLET??(IN THIS DAILY DOSAGE)
     Route: 048
     Dates: start: 20160107
  3. PRIADEL [Concomitant]
     Active Substance: LITHIUM CARBONATE
     Indication: BIPOLAR DISORDER
     Dosage: STRENGTH: 400 MG
     Route: 048
     Dates: start: 20140603

REACTIONS (2)
  - Medication residue present [Not Recovered/Not Resolved]
  - Drug effect decreased [Unknown]

NARRATIVE: CASE EVENT DATE: 201701
